FAERS Safety Report 18596252 (Version 1)
Quarter: 2020Q4

REPORT INFORMATION
  Report Type: Spontaneous
  Country: FR (occurrence: FR)
  Receive Date: 20201209
  Receipt Date: 20201209
  Transmission Date: 20210114
  Serious: Yes (Congenital Anomaly)
  Sender: FDA-Public Use
  Company Number: FR-TEVA-2020-FR-1855615

PATIENT
  Sex: Female
  Weight: 2.71 kg

DRUGS (3)
  1. ASPEGIC [ACETYLSALICYLATE LYSINE] [Suspect]
     Active Substance: ASPIRIN DL-LYSINE
     Indication: ABORTION SPONTANEOUS
     Dosage: UNIT DOSE : 100 MG
     Route: 064
  2. TARDYFERON [Concomitant]
     Active Substance: FERROUS SULFATE
     Indication: ANAEMIA OF PREGNANCY
     Dosage: UNIT DOSE : 80 MG
     Route: 064
  3. OMEPRAZOLE. [Suspect]
     Active Substance: OMEPRAZOLE
     Indication: GASTROOESOPHAGEAL REFLUX DISEASE
     Dosage: UNIT DOSE : 20 MG
     Route: 064

REACTIONS (1)
  - Congenital ovarian anomaly [Recovered/Resolved with Sequelae]

NARRATIVE: CASE EVENT DATE: 20180410
